FAERS Safety Report 10142182 (Version 1)
Quarter: 2014Q2

REPORT INFORMATION
  Report Type: Spontaneous
  Country: US (occurrence: US)
  Receive Date: 20140430
  Receipt Date: 20140430
  Transmission Date: 20141212
  Serious: Yes (Other)
  Sender: FDA-Public Use
  Company Number: US-SANOFI-AVENTIS-2013SA064442

PATIENT
  Sex: Female

DRUGS (1)
  1. CLOMID [Suspect]

REACTIONS (1)
  - Abortion spontaneous [Unknown]
